FAERS Safety Report 16215354 (Version 2)
Quarter: 2019Q3

REPORT INFORMATION
  Report Type: Report from Study
  Country: US (occurrence: US)
  Receive Date: 20190419
  Receipt Date: 20190702
  Transmission Date: 20191004
  Serious: Yes (Hospitalization, Other)
  Sender: FDA-Public Use
  Company Number: US-SAKK-2018SA260483AA

PATIENT
  Age: 31 Year
  Sex: Female

DRUGS (2)
  1. BACLOFEN. [Suspect]
     Active Substance: BACLOFEN
     Dosage: UNK UNK, UNK
     Route: 065
  2. ALEMTUZUMAB [Suspect]
     Active Substance: ALEMTUZUMAB
     Indication: MULTIPLE SCLEROSIS
     Dosage: 12 MG, QD
     Route: 041
     Dates: start: 20180507, end: 20180511

REACTIONS (34)
  - Cerebrospinal fluid leakage [Unknown]
  - Decreased immune responsiveness [Not Recovered/Not Resolved]
  - Thyroid mass [Not Recovered/Not Resolved]
  - Productive cough [Not Recovered/Not Resolved]
  - Fatigue [Not Recovered/Not Resolved]
  - Basedow^s disease [Not Recovered/Not Resolved]
  - Rhinorrhoea [Not Recovered/Not Resolved]
  - Nasal congestion [Not Recovered/Not Resolved]
  - Blood test abnormal [Unknown]
  - Surgery [Unknown]
  - Device failure [Unknown]
  - Increased appetite [Not Recovered/Not Resolved]
  - Hypoaesthesia oral [Not Recovered/Not Resolved]
  - Thinking abnormal [Not Recovered/Not Resolved]
  - Sputum discoloured [Not Recovered/Not Resolved]
  - Drug monitoring procedure not performed [Not Recovered/Not Resolved]
  - Multiple sclerosis relapse [Unknown]
  - Asthma [Not Recovered/Not Resolved]
  - Dysphagia [Not Recovered/Not Resolved]
  - Gastrooesophageal reflux disease [Not Recovered/Not Resolved]
  - Blood thyroid stimulating hormone increased [Not Recovered/Not Resolved]
  - Trigeminal neuralgia [Not Recovered/Not Resolved]
  - Oropharyngeal pain [Unknown]
  - Unevaluable event [Unknown]
  - Hyperthyroidism [Not Recovered/Not Resolved]
  - Blood thyroid stimulating hormone decreased [Unknown]
  - Weight decreased [Unknown]
  - Muscle spasticity [Not Recovered/Not Resolved]
  - Malaise [Unknown]
  - Bladder disorder [Not Recovered/Not Resolved]
  - Post lumbar puncture syndrome [Not Recovered/Not Resolved]
  - Secretion discharge [Not Recovered/Not Resolved]
  - Eye colour change [Not Recovered/Not Resolved]
  - Joint neoplasm [Not Recovered/Not Resolved]

NARRATIVE: CASE EVENT DATE: 2018
